FAERS Safety Report 7489916-X (Version None)
Quarter: 2011Q2

REPORT INFORMATION
  Report Type: 
  Country: None (occurrence: None)
  Receive Date: 20110517
  Receipt Date: 20110517
  Transmission Date: 20111010
  Serious: Yes (Other)
  Sender: FDA-Public Use
  Company Number: None

PATIENT
  Age: 67 Year
  Sex: Male
  Weight: 83.9154 kg

DRUGS (1)
  1. XIBROM [Suspect]
     Indication: EYE SWELLING
     Dosage: 1 DROP TWICE DAILY RIGHT EYE ONE TIME ONLY
     Route: 031
     Dates: start: 20110412

REACTIONS (1)
  - TINNITUS [None]
